FAERS Safety Report 11861237 (Version 1)
Quarter: 2015Q4

REPORT INFORMATION
  Report Type: Spontaneous
  Country: US (occurrence: US)
  Receive Date: 20151222
  Receipt Date: 20151222
  Transmission Date: 20160305
  Serious: Yes (Other)
  Sender: FDA-Public Use
  Company Number: US-ASTRAZENECA-2005UW01363

PATIENT
  Age: 53 Year
  Sex: Female
  Weight: 83.9 kg

DRUGS (15)
  1. TOPROL XL [Suspect]
     Active Substance: METOPROLOL SUCCINATE
     Indication: STENT PLACEMENT
     Route: 048
     Dates: start: 2003
  2. TOPROL XL [Suspect]
     Active Substance: METOPROLOL SUCCINATE
     Indication: STENT PLACEMENT
     Route: 048
     Dates: start: 2005
  3. TOPROL XL [Suspect]
     Active Substance: METOPROLOL SUCCINATE
     Indication: STENT PLACEMENT
     Dosage: METOPROLOL SUCCINATE-UNK MANUFACTURER
     Route: 048
  4. FUROSEMIDE. [Concomitant]
     Active Substance: FUROSEMIDE
     Indication: FLUID RETENTION
     Route: 048
     Dates: start: 2002
  5. PLAVIX [Concomitant]
     Active Substance: CLOPIDOGREL BISULFATE
     Indication: ANTICOAGULANT THERAPY
     Dosage: DAILY
     Route: 048
     Dates: start: 20021005, end: 200212
  6. TOPROL XL [Suspect]
     Active Substance: METOPROLOL SUCCINATE
     Indication: STENT PLACEMENT
     Route: 048
     Dates: start: 2002, end: 2005
  7. TOPROL XL [Suspect]
     Active Substance: METOPROLOL SUCCINATE
     Indication: MYOCARDIAL INFARCTION
     Route: 048
     Dates: start: 2003
  8. ASPIRIN. [Concomitant]
     Active Substance: ASPIRIN
  9. TOPROL XL [Suspect]
     Active Substance: METOPROLOL SUCCINATE
     Indication: MYOCARDIAL INFARCTION
     Route: 048
     Dates: start: 2002, end: 200408
  10. TOPROL XL [Suspect]
     Active Substance: METOPROLOL SUCCINATE
     Indication: MYOCARDIAL INFARCTION
     Route: 048
     Dates: start: 2002, end: 2005
  11. TOPROL XL [Suspect]
     Active Substance: METOPROLOL SUCCINATE
     Indication: MYOCARDIAL INFARCTION
     Route: 048
     Dates: start: 200408
  12. TOPROL XL [Suspect]
     Active Substance: METOPROLOL SUCCINATE
     Indication: STENT PLACEMENT
     Route: 048
     Dates: start: 2002, end: 200408
  13. TOPROL XL [Suspect]
     Active Substance: METOPROLOL SUCCINATE
     Indication: STENT PLACEMENT
     Route: 048
     Dates: start: 200408
  14. TOPROL XL [Suspect]
     Active Substance: METOPROLOL SUCCINATE
     Indication: MYOCARDIAL INFARCTION
     Route: 048
     Dates: start: 2005
  15. TOPROL XL [Suspect]
     Active Substance: METOPROLOL SUCCINATE
     Indication: MYOCARDIAL INFARCTION
     Dosage: METOPROLOL SUCCINATE-UNK MANUFACTURER
     Route: 048

REACTIONS (12)
  - Nail growth abnormal [Unknown]
  - Oedema [Unknown]
  - Product use issue [Unknown]
  - Flatulence [Unknown]
  - Off label use [Unknown]
  - Weight increased [Unknown]
  - Somnolence [Recovered/Resolved]
  - Abdominal distension [Unknown]
  - Dyspepsia [Unknown]
  - Hair growth abnormal [Unknown]
  - Cardiac flutter [Unknown]
  - Disturbance in attention [Unknown]
